FAERS Safety Report 8341857-1 (Version None)
Quarter: 2012Q2

REPORT INFORMATION
  Report Type: 
  Country: None (occurrence: None)
  Receive Date: 20120507
  Receipt Date: 20120426
  Transmission Date: 20120825
  Serious: Yes (Life-Threatening, Hospitalization)
  Sender: FDA-Public Use
  Company Number: JP-CTI_01466_2012

PATIENT
  Sex: Female

DRUGS (3)
  1. MEIACT MS - CEFDITOREN PIVOXIL [Suspect]
     Indication: PHARYNGEAL ERYTHEMA
     Dosage: DAILY DOSE 300MG
     Route: 048
     Dates: start: 20120402, end: 20120405
  2. MEIACT MS - CEFDITOREN PIVOXIL [Suspect]
     Indication: NASOPHARYNGITIS
     Dosage: DAILY DOSE 300MG
     Route: 048
     Dates: start: 20120402, end: 20120405
  3. SALICYLAMIDE/ACETAMINOPHEN/ANHYDROUS CAFFEINE/CHLORPHENIRAMINE MALEATE [Concomitant]
     Indication: PRODUCT USED FOR UNKNOWN INDICATION
     Dosage: 3 MG DAILY
     Route: 048
     Dates: start: 20120402, end: 20120405

REACTIONS (2)
  - JAUNDICE [None]
  - HEPATITIS ACUTE [None]
